FAERS Safety Report 9056188 (Version 1)
Quarter: 2013Q1

REPORT INFORMATION
  Report Type: Spontaneous
  Country: BR (occurrence: BR)
  Receive Date: 20130205
  Receipt Date: 20130205
  Transmission Date: 20140127
  Serious: Yes (Other)
  Sender: FDA-Public Use
  Company Number: BR-PFIZER INC-2013029519

PATIENT
  Sex: Female

DRUGS (1)
  1. PRISTIQ [Suspect]
     Dosage: 100 MG, UNK
     Route: 048

REACTIONS (4)
  - Shock [Unknown]
  - Hypoaesthesia oral [Unknown]
  - Chills [Unknown]
  - Dizziness [Unknown]
